FAERS Safety Report 13904686 (Version 1)
Quarter: 2017Q3

REPORT INFORMATION
  Report Type: Spontaneous
  Country: US (occurrence: US)
  Receive Date: 20170825
  Receipt Date: 20170825
  Transmission Date: 20171127
  Serious: No
  Sender: FDA-Public Use
  Company Number: US-PFIZER INC-2017365238

PATIENT
  Age: 63 Year
  Sex: Female

DRUGS (1)
  1. METHOTREXATE SODIUM. [Suspect]
     Active Substance: METHOTREXATE SODIUM
     Dosage: 17.5 MG, WEEKLY

REACTIONS (6)
  - Arthralgia [Unknown]
  - Condition aggravated [Unknown]
  - Joint range of motion decreased [Unknown]
  - Pain in extremity [Unknown]
  - Tenderness [Unknown]
  - Swelling [Unknown]
